FAERS Safety Report 7345109-8 (Version None)
Quarter: 2011Q1

REPORT INFORMATION
  Report Type: 
  Country: None (occurrence: None)
  Receive Date: 20110310
  Receipt Date: 20110307
  Transmission Date: 20110831
  Serious: Yes (Death)
  Sender: FDA-Public Use
  Company Number: US-ELI_LILLY_AND_COMPANY-US201011001527

PATIENT
  Sex: Female

DRUGS (1)
  1. FORTEO [Suspect]
     Indication: OSTEOPOROSIS
     Dosage: UNK, UNKNOWN
     Dates: end: 20101001

REACTIONS (5)
  - PAIN [None]
  - DEATH [None]
  - BONE PAIN [None]
  - WEIGHT DECREASED [None]
  - GAIT DISTURBANCE [None]
